FAERS Safety Report 5008559-0 (Version None)
Quarter: 2006Q2

REPORT INFORMATION
  Report Type: 
  Country: None (occurrence: None)
  Receive Date: 20060523
  Receipt Date: 20060320
  Transmission Date: 20061013
  Serious: Yes (Other)
  Sender: FDA-Public Use
  Company Number: US-MERCK-0603USA03160

PATIENT
  Age: 79 Year
  Sex: Female

DRUGS (5)
  1. BOTOX [Concomitant]
     Route: 065
  2. VALIUM [Concomitant]
     Route: 065
  3. LOPRESSOR [Concomitant]
     Route: 065
  4. ZETIA [Suspect]
     Indication: BLOOD CHOLESTEROL INCREASED
     Route: 048
     Dates: start: 20051013, end: 20051230
  5. ZETIA [Suspect]
     Indication: BLOOD TRIGLYCERIDES INCREASED
     Route: 048
     Dates: start: 20051013, end: 20051230

REACTIONS (11)
  - CAROTID ARTERY ATHEROMA [None]
  - EYE SWELLING [None]
  - GLYCOSYLATED HAEMOGLOBIN INCREASED [None]
  - MUSCLE FATIGUE [None]
  - OCULAR VASCULAR DISORDER [None]
  - OEDEMA PERIPHERAL [None]
  - OPTIC DISC HAEMORRHAGE [None]
  - OPTIC ISCHAEMIC NEUROPATHY [None]
  - PAIN IN EXTREMITY [None]
  - SERUM FERRITIN INCREASED [None]
  - TONGUE PARALYSIS [None]
